FAERS Safety Report 10919104 (Version 1)
Quarter: 2015Q1

REPORT INFORMATION
  Report Type: Spontaneous
  Country: AU (occurrence: AU)
  Receive Date: 20150316
  Receipt Date: 20150316
  Transmission Date: 20150721
  Serious: Yes (Other)
  Sender: FDA-Public Use
  Company Number: AU-JNJFOC-20150306358

PATIENT
  Age: 50 Year
  Sex: Female

DRUGS (4)
  1. PANADEINE FORTE [Concomitant]
     Active Substance: ACETAMINOPHEN\CODEINE PHOSPHATE
     Dosage: 500 MG/30 MG, 1-2 PRN MAX QDS
     Route: 065
  2. NASONEX [Concomitant]
     Active Substance: MOMETASONE FUROATE
     Dosage: 50 MCG/ACTUATION
     Route: 045
  3. ENOXAPARIN [Concomitant]
     Active Substance: ENOXAPARIN
     Dosage: 60 MG/0.6 ML
     Route: 065
  4. XARELTO [Suspect]
     Active Substance: RIVAROXABAN
     Indication: PRODUCT USED FOR UNKNOWN INDICATION
     Route: 048
     Dates: start: 2013

REACTIONS (4)
  - Pain in extremity [Unknown]
  - Pulmonary embolism [Unknown]
  - Chest pain [Unknown]
  - Drug ineffective [Unknown]

NARRATIVE: CASE EVENT DATE: 20150227
